FAERS Safety Report 18856590 (Version 1)
Quarter: 2021Q1

REPORT INFORMATION
  Report Type: Report from Study
  Country: CA (occurrence: CA)
  Receive Date: 20210207
  Receipt Date: 20210207
  Transmission Date: 20210420
  Serious: Yes (Other)
  Sender: FDA-Public Use
  Company Number: CA-TAKEDA-2021TUS005598

PATIENT
  Age: 62 Year
  Sex: Male

DRUGS (6)
  1. VEDOLIZUMAB [Suspect]
     Active Substance: VEDOLIZUMAB
     Indication: COLITIS ULCERATIVE
     Dosage: 300 MILLIGRAM
     Route: 042
     Dates: start: 20180503
  2. FOLIC ACID. [Concomitant]
     Active Substance: FOLIC ACID
     Dosage: 5 MILLIGRAM, QD
  3. MEZAVANT [Concomitant]
     Active Substance: MESALAMINE
     Dosage: 1.2 GRAM, QD
  4. AMLODIPINE [Concomitant]
     Active Substance: AMLODIPINE BESYLATE
     Dosage: 7.5 MILLIGRAM, QD
  5. VEDOLIZUMAB [Suspect]
     Active Substance: VEDOLIZUMAB
     Dosage: 300 MILLIGRAM, Q4WEEKS
     Route: 042
     Dates: start: 20200909
  6. METHOTREXATE. [Concomitant]
     Active Substance: METHOTREXATE
     Dosage: 1 MILLILITER, 1/WEEK

REACTIONS (3)
  - Off label use [Unknown]
  - Cerebrovascular accident [Unknown]
  - Eye disorder [Unknown]

NARRATIVE: CASE EVENT DATE: 20200909
